FAERS Safety Report 21718722 (Version 1)
Quarter: 2022Q4

REPORT INFORMATION
  Report Type: Spontaneous
  Country: US (occurrence: US)
  Receive Date: 20221213
  Receipt Date: 20221213
  Transmission Date: 20230112
  Serious: Yes (Other)
  Sender: FDA-Public Use
  Company Number: US-STRIDES ARCOLAB LIMITED-2022SP015446

PATIENT
  Age: 61 Year
  Sex: Female

DRUGS (13)
  1. PREDNISOLONE [Suspect]
     Active Substance: PREDNISOLONE
     Indication: Immune thrombocytopenia
     Dosage: UNK
     Route: 065
     Dates: start: 2020
  2. ELTROMBOPAG [Suspect]
     Active Substance: ELTROMBOPAG
     Indication: Immune thrombocytopenia
     Dosage: UNK, INITIAL DOSE NOT STATED; AT THE TIME OF THE VISIT HER DOSE WAS 25 MG/DAY, WHICH WAS INCREASED T
     Route: 048
     Dates: start: 2020
  3. ELTROMBOPAG [Suspect]
     Active Substance: ELTROMBOPAG
     Dosage: 25 MILLIGRAM/DAY
     Route: 048
     Dates: start: 20200317
  4. ELTROMBOPAG [Suspect]
     Active Substance: ELTROMBOPAG
     Dosage: 50 MILLIGRAM/DAY
     Route: 048
     Dates: start: 202003, end: 2021
  5. ELTROMBOPAG [Suspect]
     Active Substance: ELTROMBOPAG
     Dosage: 75 MILLIGRAM/DAY
     Route: 048
     Dates: start: 202004
  6. ELTROMBOPAG [Suspect]
     Active Substance: ELTROMBOPAG
     Dosage: 50 MILLIGRAM/DAY
     Route: 048
     Dates: start: 2020
  7. ELTROMBOPAG [Suspect]
     Active Substance: ELTROMBOPAG
     Dosage: 75 MILLIGRAM/DAY
     Route: 048
     Dates: start: 2020, end: 20200901
  8. RITUXIMAB [Suspect]
     Active Substance: RITUXIMAB
     Indication: Immune thrombocytopenia
     Dosage: 375 MILLIGRAM/SQ. METER
     Route: 042
     Dates: start: 202005
  9. FOSTAMATINIB [Suspect]
     Active Substance: FOSTAMATINIB
     Indication: Immune thrombocytopenia
     Dosage: 100 MILLIGRAM, BID
     Route: 048
     Dates: start: 2020
  10. FOSTAMATINIB [Suspect]
     Active Substance: FOSTAMATINIB
     Dosage: 150 MILLIGRAM, BID
     Route: 048
     Dates: start: 2020, end: 202004
  11. FOSTAMATINIB [Suspect]
     Active Substance: FOSTAMATINIB
     Dosage: 150 MILLIGRAM, BID
     Route: 048
     Dates: start: 20200901
  12. FOSTAMATINIB [Suspect]
     Active Substance: FOSTAMATINIB
     Dosage: 100 MILLIGRAM, BID (START DATE: 02-JAN-2021)
     Route: 048
  13. FOSTAMATINIB [Suspect]
     Active Substance: FOSTAMATINIB
     Dosage: 75 MILLIGRAM, BID (START DATE: 04-JAN-2021)
     Route: 048

REACTIONS (1)
  - Drug ineffective [Unknown]

NARRATIVE: CASE EVENT DATE: 20200101
